FAERS Safety Report 8831736 (Version 3)
Quarter: 2012Q4

REPORT INFORMATION
  Report Type: 
  Country: BR (occurrence: BR)
  Receive Date: 20121009
  Receipt Date: 20121101
  Transmission Date: 20130627
  Serious: Yes (Hospitalization, Other)
  Sender: FDA-Public Use
  Company Number: BR-PFIZER INC-2012249118

PATIENT
  Age: 79 Year
  Sex: Female

DRUGS (2)
  1. CELEBRA [Suspect]
     Indication: SPINAL PAIN
     Dosage: 1x/day, strength 200mg
     Route: 048
     Dates: start: 20001005
  2. CELEBRA [Suspect]
     Indication: ARTHROSIS

REACTIONS (2)
  - Arthropathy [Unknown]
  - Cerebrovascular accident [Unknown]
